FAERS Safety Report 6184726-8 (Version None)
Quarter: 2009Q2

REPORT INFORMATION
  Report Type: 
  Country: None (occurrence: None)
  Receive Date: 20090508
  Receipt Date: 20090507
  Transmission Date: 20091009
  Serious: Yes (Hospitalization)
  Sender: FDA-Public Use
  Company Number: CN-WYE-G03646009

PATIENT
  Age: 42 Year
  Sex: Female

DRUGS (2)
  1. PREMARIN [Suspect]
     Indication: AMENORRHOEA
     Dosage: UNSPECIFIC
     Route: 048
  2. PROGYNOVA [Suspect]

REACTIONS (1)
  - ACUTE HEPATIC FAILURE [None]
